FAERS Safety Report 15323054 (Version 1)
Quarter: 2018Q3

REPORT INFORMATION
  Report Type: Spontaneous
  Country: US (occurrence: US)
  Receive Date: 20180827
  Receipt Date: 20180827
  Transmission Date: 20181010
  Serious: Yes (Other)
  Sender: FDA-Public Use
  Company Number: US-TAKEDA-2018TUS025707

PATIENT
  Sex: Male

DRUGS (1)
  1. ULORIC [Suspect]
     Active Substance: FEBUXOSTAT
     Indication: PRODUCT USED FOR UNKNOWN INDICATION
     Dosage: 40 MG, QD
     Route: 048

REACTIONS (3)
  - Impaired healing [Not Recovered/Not Resolved]
  - Cyst [Unknown]
  - Suture related complication [Unknown]
